FAERS Safety Report 8197053-4 (Version None)
Quarter: 2012Q1

REPORT INFORMATION
  Report Type: 
  Country: None (occurrence: None)
  Receive Date: 20120309
  Receipt Date: 20120301
  Transmission Date: 20120608
  Serious: Yes (Hospitalization)
  Sender: FDA-Public Use
  Company Number: JP-SANOFI-AVENTIS-2012SA001601

PATIENT
  Age: 64 Year
  Sex: Female
  Weight: 37 kg

DRUGS (17)
  1. GIMERACIL/OTERACIL POTASSIUM/TEGAFUR [Suspect]
     Indication: GASTRIC CANCER
     Route: 048
     Dates: start: 20111007
  2. LANSOPRAZOLE [Concomitant]
     Indication: GASTRIC CANCER
     Route: 048
     Dates: end: 20120105
  3. MAXIPIME [Concomitant]
     Route: 042
     Dates: start: 20120105
  4. OXALIPLATIN [Suspect]
     Route: 041
     Dates: start: 20120207
  5. DIGOXIN [Concomitant]
     Indication: ATRIAL FIBRILLATION
     Route: 048
     Dates: start: 20111021, end: 20120105
  6. OXALIPLATIN [Suspect]
     Indication: GASTRIC CANCER
     Route: 041
     Dates: start: 20111007
  7. OXALIPLATIN [Suspect]
     Route: 041
     Dates: start: 20111222
  8. GIMERACIL/OTERACIL POTASSIUM/TEGAFUR [Suspect]
     Route: 048
     Dates: start: 20111108
  9. BROTIZOLAM [Concomitant]
     Indication: INSOMNIA
     Route: 048
     Dates: end: 20120104
  10. SOLUTIONS FOR PARENTERAL NUTRITION [Concomitant]
     Indication: DECREASED APPETITE
     Route: 048
     Dates: start: 20111012, end: 20120105
  11. OXALIPLATIN [Suspect]
     Route: 041
     Dates: start: 20111130
  12. OXALIPLATIN [Suspect]
     Route: 041
     Dates: start: 20111108
  13. GIMERACIL/OTERACIL POTASSIUM/TEGAFUR [Suspect]
     Route: 048
     Dates: start: 20120207
  14. LOXONIN [Concomitant]
     Indication: GASTRIC CANCER
     Route: 048
     Dates: end: 20120105
  15. GIMERACIL/OTERACIL POTASSIUM/TEGAFUR [Suspect]
     Route: 048
     Dates: start: 20111130
  16. GIMERACIL/OTERACIL POTASSIUM/TEGAFUR [Suspect]
     Route: 048
     Dates: start: 20111222
  17. PRIMPERAN TAB [Concomitant]
     Indication: NAUSEA
     Route: 048
     Dates: end: 20120105

REACTIONS (14)
  - PNEUMATOSIS INTESTINALIS [None]
  - FEBRILE NEUTROPENIA [None]
  - DIARRHOEA [None]
  - PLEURAL EFFUSION [None]
  - ENTEROCOLITIS [None]
  - GASTROINTESTINAL STENOSIS [None]
  - GASTROINTESTINAL PERFORATION [None]
  - GASTROINTESTINAL TRACT ADENOMA [None]
  - GASTROINTESTINAL OBSTRUCTION [None]
  - ILEITIS [None]
  - GASTROINTESTINAL EROSION [None]
  - DECREASED APPETITE [None]
  - VOMITING [None]
  - GASTROINTESTINAL ULCER [None]
